FAERS Safety Report 6765169-2 (Version None)
Quarter: 2010Q2

REPORT INFORMATION
  Report Type: 
  Country: None (occurrence: None)
  Receive Date: 20100610
  Receipt Date: 20100610
  Transmission Date: 20101027
  Serious: No
  Sender: FDA-Public Use
  Company Number: None

PATIENT
  Sex: Female
  Weight: 63.5036 kg

DRUGS (1)
  1. JUVADERM ULTRA PLUS XC [Suspect]
     Indication: SKIN WRINKLING
     Dosage: X 1 DERMAL INJECTION  2 SYRINGES (2X 0.8 ML)
     Route: 059
     Dates: start: 20100510

REACTIONS (1)
  - ANGIOEDEMA [None]
